FAERS Safety Report 9613208 (Version 1)
Quarter: 2013Q4

REPORT INFORMATION
  Report Type: Spontaneous
  Country: US (occurrence: US)
  Receive Date: 20131010
  Receipt Date: 20131010
  Transmission Date: 20140711
  Serious: Yes (Other)
  Sender: FDA-Public Use
  Company Number: US-TAKEDA-2013TUS001285

PATIENT
  Sex: 0

DRUGS (17)
  1. ULORIC [Suspect]
     Indication: HYPERURICAEMIA
     Dosage: 40 MG, QD
     Route: 048
     Dates: start: 2012
  2. COLCRYS [Suspect]
     Indication: GOUT
     Dosage: UNK, PRN
     Route: 048
  3. DEXILANT [Suspect]
     Indication: GASTRIC HAEMORRHAGE
     Dosage: UNK
     Route: 048
     Dates: start: 20130723
  4. ZEMPLAR [Concomitant]
     Indication: HYPERPARATHYROIDISM SECONDARY
     Dosage: UNK
  5. PLAVIX [Concomitant]
     Dosage: UNK
  6. LOSARTIN [Concomitant]
     Indication: HYPERTENSION
     Dosage: UNK
  7. CRESTOR [Concomitant]
     Dosage: UNK
  8. GLIMEPIRIDE W/METFORMIN [Concomitant]
     Indication: DIABETES MELLITUS
     Dosage: UNK
  9. ALL OTHER THERAPEUTIC PRODUCTS [Concomitant]
     Indication: SUPPLEMENTATION THERAPY
     Dosage: UNK
  10. IRON COMPLEX                       /00023501/ [Concomitant]
     Indication: SUPPLEMENTATION THERAPY
     Dosage: UNK
  11. VITAMINS                           /00067501/ [Concomitant]
     Indication: SUPPLEMENTATION THERAPY
     Dosage: UNK
  12. CONEX                              /00283001/ [Concomitant]
     Dosage: UNK
  13. GEMFIBROZIL [Concomitant]
     Dosage: UNK
  14. ALL OTHER THERAPEUTIC PRODUCTS [Concomitant]
     Dosage: UNK
  15. TRICHLORACETIC ACD                 /00331501/ [Concomitant]
     Dosage: UNK
  16. METHIMAZOLE [Concomitant]
     Dosage: UNK
  17. ALL OTHER THERAPEUTIC PRODUCTS [Concomitant]
     Dosage: UNK

REACTIONS (5)
  - Gastric haemorrhage [Unknown]
  - Hyperparathyroidism secondary [Not Recovered/Not Resolved]
  - Gout [Unknown]
  - Malaise [Unknown]
  - Fatigue [Unknown]
